FAERS Safety Report 5417711-1 (Version None)
Quarter: 2007Q3

REPORT INFORMATION
  Report Type: 
  Country: None (occurrence: None)
  Receive Date: 20070815
  Receipt Date: 20070815
  Transmission Date: 20080115
  Serious: Yes (Hospitalization)
  Sender: FDA-Public Use
  Company Number: None

PATIENT
  Sex: Female
  Weight: 77.1115 kg

DRUGS (6)
  1. AMILORIDE HCL AND HYDROCHLOROTHIAZIDE [Suspect]
     Indication: HYPERTENSION
     Dosage: 5/50 MG PO QD PRIOR TO ADMISSION
     Route: 048
  2. VYTORIN [Concomitant]
  3. MOBIC [Concomitant]
  4. EVISTA [Concomitant]
  5. ARICEPT [Concomitant]
  6. KLOR-CON [Concomitant]

REACTIONS (4)
  - DIZZINESS [None]
  - HEADACHE [None]
  - HYPOKALAEMIA [None]
  - HYPONATRAEMIA [None]
